FAERS Safety Report 7262256-X (Version None)
Quarter: 2011Q1

REPORT INFORMATION
  Report Type: 
  Country: None (occurrence: None)
  Receive Date: 20110130
  Receipt Date: 20101126
  Transmission Date: 20110831
  Serious: No
  Sender: FDA-Public Use
  Company Number: US-ABBOTT-10P-163-0687730-00

PATIENT
  Age: 26 Year
  Sex: Male

DRUGS (4)
  1. HYDROCODONE [Concomitant]
     Indication: PAIN
  2. MERCAPTOPURIL [Concomitant]
     Indication: PRODUCT USED FOR UNKNOWN INDICATION
  3. HUMIRA [Suspect]
     Indication: CROHN'S DISEASE
     Dates: start: 20100801
  4. ASOPHEX [Concomitant]
     Indication: ULCER

REACTIONS (1)
  - ABDOMINAL PAIN [None]
